FAERS Safety Report 17217388 (Version 2)
Quarter: 2021Q1

REPORT INFORMATION
  Report Type: Spontaneous
  Country: US (occurrence: US)
  Receive Date: 20191231
  Receipt Date: 20210218
  Transmission Date: 20210419
  Serious: Yes (Death, Other)
  Sender: FDA-Public Use
  Company Number: US-ASTRAZENECA-2019SF88724

PATIENT
  Age: 73 Year
  Sex: Male

DRUGS (57)
  1. PRILOSEC [Suspect]
     Active Substance: OMEPRAZOLE MAGNESIUM
     Indication: GASTROOESOPHAGEAL REFLUX DISEASE
     Route: 048
     Dates: start: 199901, end: 200812
  2. PREVACID [Suspect]
     Active Substance: LANSOPRAZOLE
     Indication: GASTROOESOPHAGEAL REFLUX DISEASE
     Route: 065
     Dates: start: 199901, end: 200812
  3. PROTONIX [Suspect]
     Active Substance: PANTOPRAZOLE SODIUM
     Indication: GASTROOESOPHAGEAL REFLUX DISEASE
     Route: 065
     Dates: start: 2001
  4. METOLAZONE. [Concomitant]
     Active Substance: METOLAZONE
  5. LEVEMIR [Concomitant]
     Active Substance: INSULIN DETEMIR
  6. PRILOSEC [Suspect]
     Active Substance: OMEPRAZOLE MAGNESIUM
     Indication: GASTROOESOPHAGEAL REFLUX DISEASE
     Route: 048
     Dates: start: 2001
  7. PREVACID [Suspect]
     Active Substance: LANSOPRAZOLE
     Indication: GASTROOESOPHAGEAL REFLUX DISEASE
     Dosage: 1?2 DAILY
     Route: 065
     Dates: start: 2001
  8. PLAVIX [Concomitant]
     Active Substance: CLOPIDOGREL BISULFATE
     Indication: CARDIAC DISORDER
     Dates: start: 200607, end: 200608
  9. PENICILLIN [Concomitant]
     Active Substance: PENICILLIN
     Indication: INFECTION
     Dates: start: 201303, end: 201304
  10. TRAMADOL. [Concomitant]
     Active Substance: TRAMADOL
     Indication: PAIN
     Dates: start: 201406, end: 201501
  11. HUMALOG [Concomitant]
     Active Substance: INSULIN LISPRO
  12. SERTRALINE [Concomitant]
     Active Substance: SERTRALINE HYDROCHLORIDE
  13. LYRICA [Concomitant]
     Active Substance: PREGABALIN
  14. NAPROXEN. [Concomitant]
     Active Substance: NAPROXEN
  15. NEXIUM [Suspect]
     Active Substance: ESOMEPRAZOLE MAGNESIUM
     Indication: GASTROOESOPHAGEAL REFLUX DISEASE
     Route: 048
     Dates: start: 2001
  16. LIPITOR [Concomitant]
     Active Substance: ATORVASTATIN CALCIUM
     Indication: BLOOD CHOLESTEROL INCREASED
     Dates: start: 200606, end: 200805
  17. LISINOPRIL. [Concomitant]
     Active Substance: LISINOPRIL
     Indication: HYPERTENSION
     Dates: start: 200903, end: 200904
  18. MIDODRINE [Concomitant]
     Active Substance: MIDODRINE
  19. MECLIZINE [Concomitant]
     Active Substance: MECLIZINE HYDROCHLORIDE
  20. BUMETANIDE. [Concomitant]
     Active Substance: BUMETANIDE
  21. RELION [Concomitant]
  22. NAPROXEN. [Concomitant]
     Active Substance: NAPROXEN
     Indication: PAIN
     Dates: start: 200609, end: 201608
  23. ALLOPURINOL. [Concomitant]
     Active Substance: ALLOPURINOL
     Indication: ANTACID THERAPY
     Dates: start: 200701, end: 201501
  24. SPIRONOLACTONE. [Concomitant]
     Active Substance: SPIRONOLACTONE
     Indication: HYPERTENSION
     Dates: start: 200902, end: 200903
  25. MELOXICAM. [Concomitant]
     Active Substance: MELOXICAM
     Indication: PAIN
     Dates: start: 201012, end: 201101
  26. MELOXICAM. [Concomitant]
     Active Substance: MELOXICAM
     Indication: PAIN
     Dates: start: 201208, end: 201209
  27. MELOXICAM. [Concomitant]
     Active Substance: MELOXICAM
     Indication: PAIN
     Dates: start: 201401, end: 201402
  28. LOSARTAN. [Concomitant]
     Active Substance: LOSARTAN
     Indication: HYPERTENSION
     Dates: start: 201103, end: 201501
  29. SEVELAMER [Concomitant]
     Active Substance: SEVELAMER
  30. KLOR?CON [Concomitant]
     Active Substance: POTASSIUM CHLORIDE
  31. LANTUS [Concomitant]
     Active Substance: INSULIN GLARGINE
  32. DICLOFENAC [Concomitant]
     Active Substance: DICLOFENAC
     Indication: PAIN
     Dates: start: 201201, end: 201203
  33. LEVOTHYROXINE. [Concomitant]
     Active Substance: LEVOTHYROXINE
  34. FEXOFENADINE [Concomitant]
     Active Substance: FEXOFENADINE HYDROCHLORIDE
  35. CEPHALEXIN. [Concomitant]
     Active Substance: CEPHALEXIN
  36. LISINOPRIL. [Concomitant]
     Active Substance: LISINOPRIL
     Indication: HYPERTENSION
     Dates: start: 200703, end: 200810
  37. INDOMETHACIN. [Concomitant]
     Active Substance: INDOMETHACIN
     Indication: PAIN
     Dates: start: 200703, end: 200802
  38. PENICILLIN [Concomitant]
     Active Substance: PENICILLIN
     Indication: INFECTION
     Dates: start: 200707, end: 200708
  39. PENICILLIN [Concomitant]
     Active Substance: PENICILLIN
     Indication: INFECTION
     Dates: start: 200907, end: 200907
  40. SIMVASTATIN. [Concomitant]
     Active Substance: SIMVASTATIN
     Indication: BLOOD CHOLESTEROL INCREASED
     Dates: start: 200805, end: 201202
  41. AMOXICILLIN. [Concomitant]
     Active Substance: AMOXICILLIN
     Indication: INFECTION
     Dates: start: 200812, end: 200812
  42. TMP/SMZ [Concomitant]
     Indication: INFECTION
     Dates: start: 200812, end: 200901
  43. TMP/SMZ [Concomitant]
     Indication: INFECTION
     Dates: start: 201310, end: 201311
  44. TRAMADOL. [Concomitant]
     Active Substance: TRAMADOL
     Indication: PAIN
     Dates: start: 201106, end: 201201
  45. ZYMAR [Concomitant]
     Active Substance: GATIFLOXACIN
  46. NITROLINGUAL [Concomitant]
     Active Substance: NITROGLYCERIN
  47. PRILOSEC [Suspect]
     Active Substance: OMEPRAZOLE MAGNESIUM
     Indication: GASTROOESOPHAGEAL REFLUX DISEASE
     Dosage: GENERIC
     Route: 065
  48. PLAVIX [Concomitant]
     Active Substance: CLOPIDOGREL BISULFATE
     Indication: CARDIAC DISORDER
     Dates: start: 200703, end: 200706
  49. NAPROXEN. [Concomitant]
     Active Substance: NAPROXEN
     Indication: PAIN
     Dates: start: 200703, end: 200706
  50. CIPROFLOXACIN. [Concomitant]
     Active Substance: CIPROFLOXACIN
     Indication: INFECTION
     Dates: start: 201209, end: 201210
  51. GABAPENTIN. [Concomitant]
     Active Substance: GABAPENTIN
  52. STAGESIC [Concomitant]
     Active Substance: ACETAMINOPHEN\HYDROCODONE BITARTRATE
  53. SALSALATE. [Concomitant]
     Active Substance: SALSALATE
  54. TRAMADOL. [Concomitant]
     Active Substance: TRAMADOL
     Indication: PAIN
     Dates: start: 201306, end: 201307
  55. ATORVASTATIN [Concomitant]
     Active Substance: ATORVASTATIN
     Indication: BLOOD CHOLESTEROL INCREASED
     Dates: start: 201201, end: 201412
  56. OXYCODONE [Concomitant]
     Active Substance: OXYCODONE
  57. ROSUVASTATIN. [Concomitant]
     Active Substance: ROSUVASTATIN

REACTIONS (3)
  - Acute kidney injury [Unknown]
  - Renal failure [Unknown]
  - Chronic kidney disease [Unknown]

NARRATIVE: CASE EVENT DATE: 2017
